FAERS Safety Report 10079317 (Version 1)
Quarter: 2014Q2

REPORT INFORMATION
  Report Type: Spontaneous
  Country: GB (occurrence: GB)
  Receive Date: 20140415
  Receipt Date: 20140415
  Transmission Date: 20141212
  Serious: Yes (Other)
  Sender: FDA-Public Use
  Company Number: PHHY2014GB041946

PATIENT
  Age: 63 Year
  Sex: Female

DRUGS (7)
  1. CICLOSPORIN [Suspect]
     Indication: IMMUNOSUPPRESSION
     Dosage: 150 MG, BID
  2. PREDNISOLONE [Suspect]
     Indication: IMMUNOSUPPRESSION
  3. TEICOPLANIN [Suspect]
  4. MEROPENEM [Suspect]
  5. VANCOMYCIN [Suspect]
  6. IMMUNE GLOBULIN [Suspect]
     Indication: PROPHYLAXIS
     Dosage: 40 MG, UNK
  7. GENTAMYCINE [Suspect]

REACTIONS (8)
  - Haematoma [Unknown]
  - Septic shock [Unknown]
  - Renal failure acute [Unknown]
  - Wound infection [Unknown]
  - Candida infection [Unknown]
  - C-reactive protein increased [Unknown]
  - Staphylococcal infection [Unknown]
  - Drug ineffective [Unknown]
